FAERS Safety Report 6247130-X (Version None)
Quarter: 2009Q2

REPORT INFORMATION
  Report Type: 
  Country: None (occurrence: None)
  Receive Date: 20090626
  Receipt Date: 20090619
  Transmission Date: 20091009
  Serious: Yes (Other)
  Sender: FDA-Public Use
  Company Number: US-AMGEN-KDL352528

PATIENT
  Age: 69 Year
  Sex: Male

DRUGS (2)
  1. PROCRIT [Suspect]
     Indication: DRUG USE FOR UNKNOWN INDICATION
  2. HYDROXYUREA [Concomitant]

REACTIONS (1)
  - HAEMOGLOBIN DECREASED [None]
